FAERS Safety Report 18676820 (Version 1)
Quarter: 2020Q4

REPORT INFORMATION
  Report Type: Spontaneous
  Country: JP (occurrence: JP)
  Receive Date: 20201229
  Receipt Date: 20201229
  Transmission Date: 20210114
  Serious: Yes (Other)
  Sender: FDA-Public Use
  Company Number: JP-PFIZER INC-2020509511

PATIENT

DRUGS (1)
  1. RHEUMATREX [Suspect]
     Active Substance: METHOTREXATE SODIUM
     Dosage: UNK, EVERY MONDAY
     Route: 048
     Dates: start: 202008

REACTIONS (2)
  - Abnormal sensation in eye [Unknown]
  - Retinal detachment [Unknown]

NARRATIVE: CASE EVENT DATE: 2020
